FAERS Safety Report 8495368-3 (Version None)
Quarter: 2012Q3

REPORT INFORMATION
  Report Type: 
  Country: None (occurrence: None)
  Receive Date: 20120702
  Receipt Date: 20120702
  Transmission Date: 20120928
  Serious: Yes (Other)
  Sender: FDA-Public Use
  Company Number: None

PATIENT
  Age: 71 Year
  Sex: Male
  Weight: 74.8435 kg

DRUGS (1)
  1. CIPROFLOXACIN HCL [Suspect]
     Indication: CATARACT OPERATION
     Dosage: A FEW DROPS OPHTHALMIC
     Route: 047
     Dates: start: 20120214, end: 20120215

REACTIONS (7)
  - HEADACHE [None]
  - ABASIA [None]
  - ARTHRALGIA [None]
  - ROTATOR CUFF SYNDROME [None]
  - PAIN IN JAW [None]
  - MUSCULOSKELETAL PAIN [None]
  - HYPERSENSITIVITY [None]
